FAERS Safety Report 9067141 (Version 2)
Quarter: 2013Q2

REPORT INFORMATION
  Report Type: Spontaneous
  Country: US (occurrence: US)
  Receive Date: 20130214
  Receipt Date: 20130425
  Transmission Date: 20140414
  Serious: Yes (Hospitalization)
  Sender: FDA-Public Use
  Company Number: US-BAYER-2013-019518

PATIENT
  Age: 19 Year
  Sex: Female

DRUGS (11)
  1. YAZ [Suspect]
     Dosage: UNK
     Dates: start: 200710, end: 20081105
  2. TORADOL [Concomitant]
     Dosage: UNK
     Dates: start: 20081018, end: 20081018
  3. TORADOL [Concomitant]
     Dosage: UNK
     Dates: start: 20081030, end: 20081030
  4. CIPRO [Concomitant]
     Dosage: UNK
     Dates: start: 20081018
  5. ZITHROMAX [Concomitant]
     Dosage: UNK
     Dates: start: 20081018
  6. PREDNISONE [Concomitant]
     Dosage: UNK
     Dates: start: 20081030
  7. DARVOCET N 100 [Concomitant]
     Dosage: UNK
     Dates: start: 20081030
  8. FLEXERIL [Concomitant]
  9. BACTRIM DS [Concomitant]
  10. KETOROLAC [Concomitant]
  11. PROMETHAZINE [Concomitant]

REACTIONS (7)
  - Deep vein thrombosis [None]
  - Injury [None]
  - Pain [None]
  - Emotional distress [None]
  - General physical health deterioration [None]
  - Anxiety [None]
  - Pain [None]
